FAERS Safety Report 15292357 (Version 1)
Quarter: 2018Q4

REPORT INFORMATION
  Report Type: Spontaneous
  Country: FR (occurrence: FR)
  Receive Date: 20180818
  Receipt Date: 20180818
  Transmission Date: 20190204
  Serious: Yes (Hospitalization)
  Sender: FDA-Public Use
  Company Number: FR-ROCHE-2170942

PATIENT
  Age: 56 Year
  Sex: Male
  Weight: 70 kg

DRUGS (3)
  1. LOXAPAC [Suspect]
     Active Substance: LOXAPINE
     Indication: SUICIDE ATTEMPT
     Route: 048
     Dates: start: 20180702
  2. LOXEN LP 50 MG [Suspect]
     Active Substance: NICARDIPINE HYDROCHLORIDE
     Indication: SUICIDE ATTEMPT
     Route: 048
     Dates: start: 20180702
  3. DIAZEPAM. [Suspect]
     Active Substance: DIAZEPAM
     Indication: SUICIDE ATTEMPT
     Dosage: MOST RECENT DOSE ON 02/JUL/2018
     Route: 048
     Dates: start: 20180702

REACTIONS (3)
  - Cardiogenic shock [Recovered/Resolved]
  - Vasoplegia syndrome [Recovered/Resolved]
  - Confusional state [Recovered/Resolved]

NARRATIVE: CASE EVENT DATE: 20180702
